FAERS Safety Report 10553494 (Version 1)
Quarter: 2014Q4

REPORT INFORMATION
  Report Type: Spontaneous
  Country: US (occurrence: None)
  Receive Date: 20141029
  Receipt Date: 20141029
  Transmission Date: 20150529
  Serious: Yes (Death)
  Sender: FDA-Public Use
  Company Number: None

PATIENT
  Age: 72 Year
  Sex: Male
  Weight: 67 kg

DRUGS (1)
  1. HEPARIN [Suspect]
     Active Substance: HEPARIN SODIUM
     Indication: ACUTE MYOCARDIAL INFARCTION
     Dosage: 18 UNITS/KG/HR  TITRATION   INTRAVENOUS
     Route: 042
     Dates: start: 20141024, end: 20141028

REACTIONS (9)
  - Subarachnoid haemorrhage [None]
  - Activated partial thromboplastin time prolonged [None]
  - Mydriasis [None]
  - Subdural haematoma [None]
  - Hypertension [None]
  - Unresponsive to stimuli [None]
  - Brain midline shift [None]
  - Activated partial thromboplastin time shortened [None]
  - Brain herniation [None]

NARRATIVE: CASE EVENT DATE: 20141028
